FAERS Safety Report 4330327-3 (Version None)
Quarter: 2004Q1

REPORT INFORMATION
  Report Type: 
  Country: None (occurrence: None)
  Receive Date: 20040329
  Receipt Date: 20040316
  Transmission Date: 20041129
  Serious: Yes (Disabling)
  Sender: FDA-Public Use
  Company Number: 2004018232

PATIENT
  Age: 47 Year
  Sex: Female

DRUGS (5)
  1. ATORVASTATIN             (ATORVASTATIN) [Suspect]
     Indication: DYSLIPIDAEMIA
     Dosage: 20 MG (DAILY), ORAL
     Route: 048
     Dates: start: 20010901, end: 20030301
  2. SIMVASTATIN [Suspect]
     Indication: ILL-DEFINED DISORDER
     Dates: start: 20030301
  3. LEVOTHYROXINE SODIUM [Concomitant]
  4. DILTIAZEM [Concomitant]
  5. METFORMIN HCL [Concomitant]

REACTIONS (7)
  - ANOREXIA [None]
  - ARTERIOSPASM CORONARY [None]
  - DEPRESSION [None]
  - HEPATOMEGALY [None]
  - MALAISE [None]
  - NAUSEA [None]
  - WEIGHT DECREASED [None]
